FAERS Safety Report 5709435-8 (Version None)
Quarter: 2008Q2

REPORT INFORMATION
  Report Type: 
  Country: None (occurrence: None)
  Receive Date: 20080418
  Receipt Date: 20080409
  Transmission Date: 20081010
  Serious: Yes (Hospitalization)
  Sender: FDA-Public Use
  Company Number: US-JNJFOC-20080403384

PATIENT
  Sex: Female

DRUGS (1)
  1. DURAGESIC-100 [Suspect]
     Indication: PAIN
     Route: 062

REACTIONS (10)
  - ABNORMAL CLOTTING FACTOR [None]
  - CHILLS [None]
  - DRUG ADMINISTERED AT INAPPROPRIATE SITE [None]
  - DYSPHAGIA [None]
  - GASTRIC DISORDER [None]
  - HOT FLUSH [None]
  - HYPERHIDROSIS [None]
  - MENOPAUSE [None]
  - NAUSEA [None]
  - PAIN [None]
